FAERS Safety Report 24658119 (Version 5)
Quarter: 2025Q3

REPORT INFORMATION
  Report Type: Spontaneous
  Country: US (occurrence: US)
  Receive Date: 20241125
  Receipt Date: 20250715
  Transmission Date: 20251020
  Serious: No
  Sender: BRISTOL-MYERS SQUIBB COMPANY
  Company Number: US-BRISTOL-MYERS SQUIBB COMPANY-2024-182978

PATIENT
  Age: 54 Year
  Sex: Female

DRUGS (1)
  1. REVLIMID [Suspect]
     Active Substance: LENALIDOMIDE
     Indication: Plasma cell myeloma
     Dosage: FREQUENCY: FOR 14 DAYS
     Route: 048

REACTIONS (6)
  - Muscle spasms [Unknown]
  - Constipation [Unknown]
  - Herpes zoster [Unknown]
  - Abdominal pain upper [Unknown]
  - Off label use [Unknown]
  - Fatigue [Unknown]
